FAERS Safety Report 18127319 (Version 5)
Quarter: 2021Q1

REPORT INFORMATION
  Report Type: Spontaneous
  Country: DE (occurrence: DE)
  Receive Date: 20200810
  Receipt Date: 20210104
  Transmission Date: 20210419
  Serious: No
  Sender: FDA-Public Use
  Company Number: DE-GW PHARMA-202008DEGW02704

PATIENT

DRUGS (6)
  1. BUCCOLAM [Concomitant]
     Active Substance: MIDAZOLAM HYDROCHLORIDE
     Indication: SEIZURE
     Dosage: UNK, PRN
     Route: 065
  2. TOPIRAMATE. [Concomitant]
     Active Substance: TOPIRAMATE
     Indication: EPILEPSY
     Dosage: 100 MILLIGRAM, BID
     Route: 065
     Dates: start: 2017
  3. EPIDYOLEX [Suspect]
     Active Substance: CANNABIDIOL
     Indication: LENNOX-GASTAUT SYNDROME
     Dosage: 50 MILLIGRAM, BID (MIXED THE DRUG INTO A YOGHURT)
     Route: 048
     Dates: start: 20200731, end: 20200805
  4. MELATONIN [Concomitant]
     Active Substance: MELATONIN
     Indication: SLEEP DISORDER
     Dosage: 10 MILLIGRAM, PRN
     Route: 065
  5. EPIDYOLEX [Suspect]
     Active Substance: CANNABIDIOL
     Dosage: 100 MILLIGRAM, BID (1ML?0?1ML)
     Route: 048
     Dates: start: 20200806
  6. PIPAMPERONE [Concomitant]
     Active Substance: PIPAMPERONE
     Indication: SEDATION
     Dosage: 60 MILLIGRAM, QD
     Route: 065

REACTIONS (7)
  - Abdominal pain upper [Recovered/Resolved]
  - Drug ineffective [Recovered/Resolved]
  - Increased appetite [Unknown]
  - Vomiting [Recovered/Resolved]
  - Wrong technique in product usage process [Unknown]
  - Diarrhoea [Recovered/Resolved]
  - Product use in unapproved indication [Not Recovered/Not Resolved]

NARRATIVE: CASE EVENT DATE: 2020
